FAERS Safety Report 15124178 (Version 1)
Quarter: 2018Q3

REPORT INFORMATION
  Report Type: Spontaneous
  Country: JP (occurrence: JP)
  Receive Date: 20180710
  Receipt Date: 20180710
  Transmission Date: 20181010
  Serious: Yes (Other)
  Sender: FDA-Public Use
  Company Number: JP-ROCHE-2151946

PATIENT
  Age: 52 Year
  Sex: Female

DRUGS (3)
  1. CISPLATIN. [Concomitant]
     Active Substance: CISPLATIN
     Indication: SQUAMOUS CELL CARCINOMA OF THE CERVIX
     Dosage: DOSAGE IS UNCERTAIN. ?ADMINISTRATION PERIOD: 6CYCLE
     Route: 041
  2. PACLITAXEL. [Concomitant]
     Active Substance: PACLITAXEL
     Indication: SQUAMOUS CELL CARCINOMA OF THE CERVIX
     Dosage: DOSAGE IS UNCERTAIN. ?ADMINISTRATION PERIOD: 6CYCLE
     Route: 041
  3. AVASTIN [Suspect]
     Active Substance: BEVACIZUMAB
     Indication: SQUAMOUS CELL CARCINOMA OF THE CERVIX
     Dosage: DOSAGE IS UNCERTAIN.
     Route: 041

REACTIONS (8)
  - Neutropenia [Unknown]
  - Nausea [Unknown]
  - Myalgia [Unknown]
  - Fatigue [Unknown]
  - Thrombocytopenia [Unknown]
  - Peripheral sensory neuropathy [Unknown]
  - Leukopenia [Unknown]
  - Anaemia [Unknown]
